FAERS Safety Report 12619452 (Version 1)
Quarter: 2016Q3

REPORT INFORMATION
  Report Type: Spontaneous
  Country: CA (occurrence: CA)
  Receive Date: 20160803
  Receipt Date: 20160803
  Transmission Date: 20161109
  Serious: Yes (Hospitalization)
  Sender: FDA-Public Use
  Company Number: CA-UNICHEM LABORATORIES LIMITED-UCM201608-000167

PATIENT
  Age: 39 Year
  Sex: Male

DRUGS (8)
  1. QUETIAPINE. [Suspect]
     Active Substance: QUETIAPINE
  2. DEXMEDETOMIDINE. [Concomitant]
     Active Substance: DEXMEDETOMIDINE
     Indication: DELIRIUM
  3. PRIMIDONE. [Suspect]
     Active Substance: PRIMIDONE
  4. CLONIDINE. [Concomitant]
     Active Substance: CLONIDINE
  5. ESCITALOPRAM [Suspect]
     Active Substance: ESCITALOPRAM OXALATE
  6. BUPROPION. [Suspect]
     Active Substance: BUPROPION
  7. OLANZAPINE. [Suspect]
     Active Substance: OLANZAPINE
  8. PHENYTOIN. [Suspect]
     Active Substance: PHENYTOIN

REACTIONS (5)
  - Toxicity to various agents [Recovered/Resolved]
  - Serotonin syndrome [Recovered/Resolved]
  - Intentional overdose [Recovered/Resolved]
  - Potentiating drug interaction [Recovered/Resolved]
  - Arrhythmia [Recovered/Resolved]
